FAERS Safety Report 19978489 (Version 1)
Quarter: 2021Q4

REPORT INFORMATION
  Report Type: Spontaneous
  Country: US (occurrence: US)
  Receive Date: 20211021
  Receipt Date: 20211021
  Transmission Date: 20220303
  Serious: No
  Sender: FDA-Public Use
  Company Number: None

PATIENT
  Age: 51 Year
  Sex: Male
  Weight: 189 kg

DRUGS (1)
  1. BAMLANIVIMAB\ETESEVIMAB [Suspect]
     Active Substance: BAMLANIVIMAB\ETESEVIMAB
     Indication: COVID-19
     Dosage: ?          OTHER DOSE:700/1400 MG;OTHER ROUTE:IV
     Dates: start: 20211019, end: 20211019

REACTIONS (2)
  - Pyrexia [None]
  - Infusion related reaction [None]

NARRATIVE: CASE EVENT DATE: 20211019
